FAERS Safety Report 8227716-3 (Version None)
Quarter: 2012Q1

REPORT INFORMATION
  Report Type: 
  Country: None (occurrence: None)
  Receive Date: 20120322
  Receipt Date: 20120319
  Transmission Date: 20120608
  Serious: No
  Sender: FDA-Public Use
  Company Number: US-PFIZER INC-2012058849

PATIENT
  Sex: Female
  Weight: 70.74 kg

DRUGS (7)
  1. TYLENOL [Concomitant]
     Indication: ARTHRITIS
     Dosage: UNK
  2. ZETIA [Concomitant]
     Dosage: 10 MG, UNK
  3. NIACIN [Concomitant]
     Dosage: 500 MG, UNK
  4. CYMBALTA [Concomitant]
     Indication: ARTHRALGIA
     Dosage: 30 MG, UNK
  5. LIPITOR [Suspect]
     Indication: BLOOD CHOLESTEROL ABNORMAL
     Dosage: 10 MG, 1X/DAY
     Route: 048
  6. ACETYLSALICYLIC ACID [Concomitant]
     Dosage: 81 MG, UNK
  7. MAGNESIUM [Concomitant]
     Dosage: UNK

REACTIONS (1)
  - BLOOD CHOLESTEROL INCREASED [None]
